FAERS Safety Report 5065780-3 (Version None)
Quarter: 2006Q3

REPORT INFORMATION
  Report Type: 
  Country: None (occurrence: None)
  Receive Date: 20060731
  Receipt Date: 20060526
  Transmission Date: 20061208
  Serious: Yes (Hospitalization)
  Sender: FDA-Public Use
  Company Number: US-ROCHE-449862

PATIENT
  Age: 57 Year
  Sex: Male

DRUGS (5)
  1. PEGASYS [Suspect]
     Dosage: ROUTE REPORTED AS INJECTABLE.
     Route: 050
     Dates: start: 20050915
  2. PEGASYS [Suspect]
     Route: 050
     Dates: start: 20050915
  3. RIBAVIRIN [Suspect]
     Route: 048
     Dates: start: 20050915, end: 20060615
  4. COPEGUS [Suspect]
     Indication: DRUG USE FOR UNKNOWN INDICATION
     Route: 048
     Dates: start: 20060615
  5. CELEXA [Concomitant]
     Indication: DEPRESSION

REACTIONS (1)
  - PERICARDITIS [None]
